FAERS Safety Report 13541717 (Version 1)
Quarter: 2017Q2

REPORT INFORMATION
  Report Type: Spontaneous
  Country: HU (occurrence: HU)
  Receive Date: 20170512
  Receipt Date: 20170512
  Transmission Date: 20170830
  Serious: Yes (Other)
  Sender: FDA-Public Use
  Company Number: HU-PRINSTON PHARMACEUTICAL INC.-2017PRN00205

PATIENT
  Age: 66 Year
  Sex: Female

DRUGS (1)
  1. HYDROCHLOROTHIAZIDE. [Suspect]
     Active Substance: HYDROCHLOROTHIAZIDE
     Indication: HYPERTENSION
     Dosage: 25 MG, 1X/DAY
     Route: 065

REACTIONS (6)
  - Hyponatraemia [Unknown]
  - Hypokalaemia [Unknown]
  - Electrocardiogram ST segment elevation [Unknown]
  - Electrocardiogram T wave inversion [Unknown]
  - Seizure [Unknown]
  - Electrocardiogram QT prolonged [Unknown]
